FAERS Safety Report 15390486 (Version 1)
Quarter: 2018Q3

REPORT INFORMATION
  Report Type: Spontaneous
  Country: US (occurrence: US)
  Receive Date: 20180909
  Receipt Date: 20180909
  Transmission Date: 20181010
  Serious: Yes (Other)
  Sender: FDA-Public Use
  Company Number: None

PATIENT
  Age: 60 Year
  Sex: Female
  Weight: 71.1 kg

DRUGS (15)
  1. CLONAZEPAM. [Concomitant]
     Active Substance: CLONAZEPAM
  2. HAIR AND  AND NAIL SUPPLEMENT [Concomitant]
  3. BABY ASPIRIN [Concomitant]
     Active Substance: ASPIRIN
  4. ROSUVASTATIN. [Concomitant]
     Active Substance: ROSUVASTATIN
  5. LOSARTAN. [Concomitant]
     Active Substance: LOSARTAN
  6. DORZOLAMIDE HCL [Concomitant]
     Active Substance: DORZOLAMIDE HYDROCHLORIDE
  7. TIMOLOL MALEATE. [Concomitant]
     Active Substance: TIMOLOL MALEATE
  8. NEXIUM [Concomitant]
     Active Substance: ESOMEPRAZOLE MAGNESIUM
  9. MULTI VITAMIN SKIN [Concomitant]
  10. COQ10 [Concomitant]
     Active Substance: UBIDECARENONE
  11. VITAMIN D3 [Concomitant]
     Active Substance: CHOLECALCIFEROL
  12. PROBIOTIC [Concomitant]
     Active Substance: PROBIOTICS NOS
  13. LAMOTRIGINE. [Suspect]
     Active Substance: LAMOTRIGINE
     Indication: BIPOLAR II DISORDER
     Dosage: QUANTITY:1 TABLET(S); AT BEDTIME?
     Route: 048
     Dates: start: 20180625, end: 20180628
  14. TURMERIC [Concomitant]
     Active Substance: HERBALS\TURMERIC
  15. VITAMIN B12 [Concomitant]
     Active Substance: CYANOCOBALAMIN

REACTIONS (9)
  - Inappropriate affect [None]
  - Feeling abnormal [None]
  - Bipolar II disorder [None]
  - Anger [None]
  - Product substitution issue [None]
  - Malaise [None]
  - Tremor [None]
  - Crying [None]
  - Screaming [None]

NARRATIVE: CASE EVENT DATE: 20180626
